FAERS Safety Report 6108871-8 (Version None)
Quarter: 2009Q1

REPORT INFORMATION
  Report Type: 
  Country: None (occurrence: None)
  Receive Date: 20090306
  Receipt Date: 20090108
  Transmission Date: 20090719
  Serious: Yes (Disabling)
  Sender: FDA-Public Use
  Company Number: 2009EU000385

PATIENT
  Age: 54 Year
  Sex: Male
  Weight: 58 kg

DRUGS (1)
  1. PROTOPIC [Suspect]
     Indication: PSORIASIS
     Dosage: 0.1 %, BID, TOPICAL
     Route: 061
     Dates: start: 20081015, end: 20081101

REACTIONS (4)
  - APPLICATION SITE OEDEMA [None]
  - APPLICATION SITE PAIN [None]
  - OFF LABEL USE [None]
  - TENDONITIS [None]
